FAERS Safety Report 20469105 (Version 1)
Quarter: 2022Q1

REPORT INFORMATION
  Report Type: Report from Study
  Country: US (occurrence: US)
  Receive Date: 20220214
  Receipt Date: 20220214
  Transmission Date: 20220423
  Serious: No
  Sender: FDA-Public Use
  Company Number: US-HRARD-2021000086

PATIENT
  Age: 36 Year
  Sex: Female

DRUGS (3)
  1. LYSODREN [Suspect]
     Active Substance: MITOTANE
     Dosage: 09 TO 12 TABLETS PER DAY
     Route: 048
     Dates: start: 20201231
  2. ATORVASTATIN [Concomitant]
     Active Substance: ATORVASTATIN
  3. A-HYDROCORT [Concomitant]
     Active Substance: HYDROCORTISONE SODIUM SUCCINATE

REACTIONS (1)
  - Illness [Not Recovered/Not Resolved]

NARRATIVE: CASE EVENT DATE: 20210220
